APPROVED DRUG PRODUCT: BUSPIRONE HYDROCHLORIDE
Active Ingredient: BUSPIRONE HYDROCHLORIDE
Strength: 10MG
Dosage Form/Route: TABLET;ORAL
Application: A202557 | Product #003 | TE Code: AB
Applicant: ACCORD HEALTHCARE INC
Approved: Dec 30, 2014 | RLD: No | RS: No | Type: RX